FAERS Safety Report 12868407 (Version 2)
Quarter: 2016Q4

REPORT INFORMATION
  Report Type: Spontaneous
  Country: US (occurrence: US)
  Receive Date: 20161020
  Receipt Date: 20161031
  Transmission Date: 20170207
  Serious: Yes (Other)
  Sender: FDA-Public Use
  Company Number: US-AMGEN-USASP2016137126

PATIENT
  Age: 69 Year
  Sex: Female

DRUGS (2)
  1. REPATHA [Suspect]
     Active Substance: EVOLOCUMAB
     Indication: TYPE IIA HYPERLIPIDAEMIA
     Dosage: 140 MG, Q2WK
     Route: 065
     Dates: start: 20161003
  2. PROGESTERONE. [Concomitant]
     Active Substance: PROGESTERONE
     Dosage: UNK

REACTIONS (25)
  - Blood cholesterol abnormal [Unknown]
  - Lacrimation increased [Unknown]
  - Rhinorrhoea [Unknown]
  - Chills [Unknown]
  - Dry skin [Unknown]
  - Dizziness [Unknown]
  - Headache [Recovered/Resolved]
  - Pulmonary congestion [Unknown]
  - Feeling cold [Recovered/Resolved]
  - Abnormal sensation in eye [Unknown]
  - Acne [Unknown]
  - Arthralgia [Unknown]
  - Balance disorder [Unknown]
  - Energy increased [Unknown]
  - Pain [Unknown]
  - Cough [Unknown]
  - Insomnia [Unknown]
  - Drug hypersensitivity [Unknown]
  - Disorientation [Unknown]
  - Oropharyngeal pain [Unknown]
  - Dysuria [Unknown]
  - Thirst [Unknown]
  - Pleuritic pain [Unknown]
  - Eye irritation [Unknown]
  - Feeling abnormal [Not Recovered/Not Resolved]

NARRATIVE: CASE EVENT DATE: 201610
